FAERS Safety Report 4361661-9 (Version None)
Quarter: 2004Q2

REPORT INFORMATION
  Report Type: 
  Country: None (occurrence: None)
  Receive Date: 20040519
  Receipt Date: 20040519
  Transmission Date: 20050107
  Serious: Yes (Life-Threatening)
  Sender: FDA-Public Use
  Company Number: None

PATIENT
  Age: 61 Year
  Sex: Female
  Weight: 82 kg

DRUGS (9)
  1. PHENYLEPINEPHRINE [Suspect]
     Indication: HYPOTENSION
     Dosage: 40 MG X 1 DOSE
  2. HEPARIN [Concomitant]
  3. ASPIRIN [Concomitant]
  4. CEFAZOLIN [Concomitant]
  5. FENTANYL [Concomitant]
  6. DIPHENHYDRAMINE HCL [Concomitant]
  7. SUCRALFATE [Concomitant]
  8. LACTATED RINGER'S [Concomitant]
  9. METOPROLOL [Concomitant]

REACTIONS (3)
  - BLOOD PRESSURE SYSTOLIC INCREASED [None]
  - MEDICATION ERROR [None]
  - OVERDOSE [None]
